FAERS Safety Report 9396195 (Version 1)
Quarter: 2013Q3

REPORT INFORMATION
  Report Type: Spontaneous
  Country: US (occurrence: US)
  Receive Date: 20130711
  Receipt Date: 20130711
  Transmission Date: 20140515
  Serious: Yes (Death, Hospitalization)
  Sender: FDA-Public Use
  Company Number: CHPA2013US010996

PATIENT
  Sex: 0

DRUGS (1)
  1. PARACETAMOL [Suspect]
     Dosage: UNK, UNK
     Route: 065

REACTIONS (3)
  - Liver injury [Fatal]
  - Toxicity to various agents [Fatal]
  - Overdose [Fatal]
